FAERS Safety Report 15120214 (Version 1)
Quarter: 2018Q3

REPORT INFORMATION
  Report Type: Spontaneous
  Country: LB (occurrence: LB)
  Receive Date: 20180709
  Receipt Date: 20180709
  Transmission Date: 20181010
  Serious: Yes (Death)
  Sender: FDA-Public Use
  Company Number: LB-ASTELLAS-2018US030186

PATIENT
  Age: 92 Year
  Sex: Male
  Weight: 65 kg

DRUGS (4)
  1. XTANDI [Suspect]
     Active Substance: ENZALUTAMIDE
     Dosage: (3?4 MONTHS) 120 MG, ONCE DAILY
     Route: 048
  2. IRON [Concomitant]
     Active Substance: IRON
     Indication: PRODUCT USED FOR UNKNOWN INDICATION
     Dosage: UNK UNK, UNKNOWN FREQ.
     Route: 065
  3. XTANDI [Suspect]
     Active Substance: ENZALUTAMIDE
     Indication: PROSTATE CANCER
     Route: 048
     Dates: start: 20160401
  4. XTANDI [Suspect]
     Active Substance: ENZALUTAMIDE
     Route: 048
     Dates: start: 201706

REACTIONS (2)
  - Diarrhoea [Unknown]
  - Cardiac failure [Fatal]

NARRATIVE: CASE EVENT DATE: 20180620
